FAERS Safety Report 7385115-0 (Version None)
Quarter: 2011Q1

REPORT INFORMATION
  Report Type: 
  Country: None (occurrence: None)
  Receive Date: 20110330
  Receipt Date: 20100908
  Transmission Date: 20110831
  Serious: Yes (Hospitalization, Other)
  Sender: FDA-Public Use
  Company Number: US-BAYER-201029718NA

PATIENT
  Sex: Female
  Weight: 111 kg

DRUGS (7)
  1. PROGESTERONE [Concomitant]
     Dosage: 100 MG, UNK
  2. YAZ [Suspect]
     Indication: MENSTRUAL CYCLE MANAGEMENT
     Dosage: FOR SOMETIME, TID
     Route: 048
     Dates: start: 20060605, end: 20080717
  3. YAZ [Suspect]
     Indication: ORAL CONTRACEPTION
  4. ESTRADIOL [Concomitant]
     Dosage: 1 MG, UNK
  5. LOVENOX [Concomitant]
     Dosage: 100 MG, BID
     Dates: start: 20080721, end: 20080725
  6. LEXAPRO [Concomitant]
     Dosage: 10 MG, UNK
  7. IRON [IRON] [Concomitant]
     Indication: ANAEMIA

REACTIONS (3)
  - PULMONARY EMBOLISM [None]
  - DEEP VEIN THROMBOSIS [None]
  - PAIN [None]
